FAERS Safety Report 10244609 (Version 1)
Quarter: 2014Q2

REPORT INFORMATION
  Report Type: Report from Study
  Country: TN (occurrence: TN)
  Receive Date: 20140618
  Receipt Date: 20140618
  Transmission Date: 20141212
  Serious: Yes (Death, Hospitalization)
  Sender: FDA-Public Use
  Company Number: TN-SA-2014SA077000

PATIENT
  Age: 63 Year
  Sex: Female

DRUGS (6)
  1. PLAVIX [Suspect]
     Indication: ACUTE CORONARY SYNDROME
     Dosage: DOSE: 75
     Route: 048
     Dates: start: 20130824, end: 20140127
  2. ASPIRIN [Concomitant]
     Route: 048
  3. COVERSYL [Concomitant]
     Route: 048
  4. LASILIX [Concomitant]
     Route: 048
  5. TAHOR [Concomitant]
     Route: 048
  6. INSULIN [Concomitant]
     Route: 058

REACTIONS (3)
  - Shock [Fatal]
  - Hypotension [Fatal]
  - Coronary artery bypass [Unknown]
